FAERS Safety Report 5961151-3 (Version None)
Quarter: 2008Q4

REPORT INFORMATION
  Report Type: 
  Country: None (occurrence: None)
  Receive Date: 20081121
  Receipt Date: 20081117
  Transmission Date: 20090506
  Serious: Yes (Other)
  Sender: FDA-Public Use
  Company Number: US-ELI_LILLY_AND_COMPANY-US200811004723

PATIENT
  Sex: Female

DRUGS (1)
  1. HUMULIN N [Suspect]
     Dates: start: 19980101

REACTIONS (4)
  - CATARACT [None]
  - EYE HAEMORRHAGE [None]
  - HYPOACUSIS [None]
  - VISUAL ACUITY REDUCED [None]
